FAERS Safety Report 23337129 (Version 1)
Quarter: 2023Q4

REPORT INFORMATION
  Report Type: Spontaneous
  Country: US (occurrence: US)
  Receive Date: 20231226
  Receipt Date: 20231226
  Transmission Date: 20240110
  Serious: No
  Sender: FDA-Public Use
  Company Number: US-Merck Healthcare KGaA-2023494060

PATIENT
  Sex: Female

DRUGS (3)
  1. REBIF [Suspect]
     Active Substance: INTERFERON BETA-1A
     Indication: Multiple sclerosis
     Dosage: WEEK ONE AND WEEK TWO 1 PEN
     Route: 058
     Dates: start: 202311
  2. REBIF [Suspect]
     Active Substance: INTERFERON BETA-1A
     Dosage: WEEK 3 AND WEEK 4, 1 PEN
     Route: 058
  3. REBIF [Suspect]
     Active Substance: INTERFERON BETA-1A
     Dosage: 1 PEN
     Route: 058

REACTIONS (4)
  - Constipation [Unknown]
  - Anger [Unknown]
  - Impatience [Unknown]
  - Multiple sclerosis relapse [Unknown]
